FAERS Safety Report 4850537-6 (Version None)
Quarter: 2005Q4

REPORT INFORMATION
  Report Type: 
  Country: None (occurrence: None)
  Receive Date: 20051208
  Receipt Date: 20051208
  Transmission Date: 20060501
  Serious: Yes (Hospitalization, Other)
  Sender: FDA-Public Use
  Company Number: None

PATIENT
  Sex: Male
  Weight: 82 kg

DRUGS (9)
  1. CYCLOPHOSPHAMIDE [Suspect]
     Indication: ACUTE LYMPHOCYTIC LEUKAEMIA
     Dosage: SEE IMAGE
     Route: 042
     Dates: start: 20050717
  2. ALLOPURINOL [Suspect]
     Dosage: SEE IMAGE
     Route: 048
  3. DAUNORUBICIN [Suspect]
     Dosage: SEE IMAGE
     Route: 042
  4. VINCRISTINE [Suspect]
     Dosage: SEE IMAGE
     Route: 042
  5. DEXAMETHASONE [Suspect]
     Dosage: SEE IMAGE
     Route: 048
  6. L-ASPARAGINASE [Suspect]
     Route: 058
  7. G-CSF [Suspect]
     Dosage: SEE IMAGE
     Route: 058
  8. METHOTREXATE [Suspect]
     Dosage: SEE IMAGE
  9. ... [Concomitant]

REACTIONS (4)
  - BLOOD CULTURE POSITIVE [None]
  - FEBRILE NEUTROPENIA [None]
  - INFECTION [None]
  - PULMONARY EMBOLISM [None]
